FAERS Safety Report 5912977-3 (Version None)
Quarter: 2008Q4

REPORT INFORMATION
  Report Type: 
  Country: None (occurrence: None)
  Receive Date: 20081008
  Receipt Date: 20080926
  Transmission Date: 20090506
  Serious: Yes (Other)
  Sender: FDA-Public Use
  Company Number: JP-PFIZER INC-2008065489

PATIENT
  Sex: Male

DRUGS (9)
  1. GABAPEN [Suspect]
     Indication: EPILEPSY
     Route: 048
     Dates: start: 20080130
  2. MUCODYNE [Concomitant]
     Route: 048
     Dates: start: 20080206
  3. MUCOSOLVAN [Concomitant]
     Route: 048
     Dates: start: 20080206
  4. ZITHROMAX [Concomitant]
     Route: 048
     Dates: start: 20080206
  5. ALEVIATIN [Concomitant]
     Dates: start: 20080209
  6. RIVOTRIL [Concomitant]
     Route: 048
     Dates: start: 20080209
  7. SELENICA-R [Concomitant]
     Route: 048
     Dates: start: 20080209
  8. DEPAKENE [Concomitant]
     Route: 048
     Dates: start: 20080209
  9. FLOMOX [Concomitant]
     Dates: start: 20080705

REACTIONS (2)
  - ANTICONVULSANT DRUG LEVEL DECREASED [None]
  - EPILEPSY [None]
